FAERS Safety Report 7043511-5 (Version None)
Quarter: 2010Q4

REPORT INFORMATION
  Report Type: 
  Country: None (occurrence: None)
  Receive Date: 20101013
  Receipt Date: 20101004
  Transmission Date: 20110411
  Serious: Yes (Life-Threatening, Hospitalization, Congenital Anomaly)
  Sender: FDA-Public Use
  Company Number: A0664380A

PATIENT
  Sex: Male
  Weight: 3.2 kg

DRUGS (5)
  1. PAXIL CR [Suspect]
     Indication: DEPRESSION
     Dosage: 25MG PER DAY
     Dates: start: 20021016, end: 20030101
  2. PRENATAL VITAMINS [Concomitant]
  3. TERBUTALINE SULFATE [Concomitant]
     Dates: start: 20030701
  4. NIFEREX [Concomitant]
     Dates: start: 20030701
  5. LACTATED RINGER'S [Concomitant]
     Dates: start: 20030713, end: 20030714

REACTIONS (17)
  - APNOEA [None]
  - ATRIAL SEPTAL DEFECT [None]
  - CARDIAC DISORDER [None]
  - CARDIAC FAILURE [None]
  - CYANOSIS [None]
  - DRUG EXPOSURE DURING PREGNANCY [None]
  - DYSPNOEA [None]
  - FLUID RETENTION [None]
  - HYPERTENSION [None]
  - HYPOPLASTIC RIGHT HEART SYNDROME [None]
  - HYPOXIA [None]
  - LUNG DISORDER [None]
  - LUNG INFILTRATION [None]
  - PULMONARY VALVE STENOSIS [None]
  - TACHYCARDIA [None]
  - TRICUSPID VALVE DISEASE [None]
  - VENTRICULAR HYPOPLASIA [None]
